FAERS Safety Report 4594202-1 (Version None)
Quarter: 2005Q1

REPORT INFORMATION
  Report Type: 
  Country: None (occurrence: None)
  Receive Date: 20050301
  Receipt Date: 20040622
  Transmission Date: 20050727
  Serious: No
  Sender: FDA-Public Use
  Company Number: US-GLAXOSMITHKLINE-A0515603A

PATIENT
  Age: 35 Year
  Sex: Female

DRUGS (2)
  1. VALTREX [Suspect]
     Route: 048
     Dates: start: 20040101
  2. AMITRIPTYLINE HCL [Concomitant]

REACTIONS (2)
  - VAGINAL CANDIDIASIS [None]
  - VAGINAL INFECTION [None]
